FAERS Safety Report 24457245 (Version 2)
Quarter: 2024Q4

REPORT INFORMATION
  Report Type: Report from Study
  Country: US (occurrence: US)
  Receive Date: 20241018
  Receipt Date: 20241024
  Transmission Date: 20250114
  Serious: Yes (Other)
  Sender: ABBVIE
  Company Number: US-ABBVIE-5923487

PATIENT
  Sex: Male
  Weight: 70 kg

DRUGS (7)
  1. CREON [Suspect]
     Active Substance: PANCRELIPASE AMYLASE\PANCRELIPASE LIPASE\PANCRELIPASE PROTEASE
     Indication: Pancreatitis chronic
     Dosage: FORM STRENGTH: 36000 UNIT?2CAPS EACH MEAL AND 1 CAP EACH MEAL
     Route: 048
     Dates: start: 20180715
  2. CREON [Suspect]
     Active Substance: PANCRELIPASE AMYLASE\PANCRELIPASE LIPASE\PANCRELIPASE PROTEASE
     Indication: Pancreatitis chronic
     Dosage: TAKING CREON MORE AS PRESCRIBED
     Route: 048
     Dates: start: 2024
  3. PANTOPRAZOLE [Concomitant]
     Active Substance: PANTOPRAZOLE
     Indication: Antacid therapy
  4. ZOFRAN [Concomitant]
     Active Substance: ONDANSETRON HYDROCHLORIDE
     Indication: Hyperchlorhydria
  5. GABAPENTIN [Concomitant]
     Active Substance: GABAPENTIN
     Indication: Neuralgia
  6. ATORVASTATIN [Concomitant]
     Active Substance: ATORVASTATIN
     Indication: Blood cholesterol
  7. HYDROCODONE [Concomitant]
     Active Substance: HYDROCODONE
     Indication: Pain

REACTIONS (6)
  - Hip arthroplasty [Recovered/Resolved]
  - Treatment noncompliance [Not Recovered/Not Resolved]
  - Weight increased [Recovering/Resolving]
  - Weight decreased [Recovered/Resolved]
  - Weight decreased [Recovered/Resolved]
  - Weight abnormal [Unknown]

NARRATIVE: CASE EVENT DATE: 20200101
